FAERS Safety Report 12074062 (Version 1)
Quarter: 2016Q1

REPORT INFORMATION
  Report Type: Spontaneous
  Country: FI (occurrence: FI)
  Receive Date: 20160212
  Receipt Date: 20160212
  Transmission Date: 20160526
  Serious: Yes (Other)
  Sender: FDA-Public Use
  Company Number: FI-BAYER-2015-244352

PATIENT
  Age: 33 Year
  Sex: Female

DRUGS (1)
  1. MIRENA [Suspect]
     Active Substance: LEVONORGESTREL
     Indication: CONTRACEPTION
     Dosage: UNK
     Dates: start: 20130819

REACTIONS (7)
  - Blood pressure increased [None]
  - Haemorrhage in pregnancy [None]
  - Device issue [None]
  - Pregnancy with contraceptive device [None]
  - Gestational diabetes [None]
  - Retroplacental haematoma [None]
  - Embedded device [None]

NARRATIVE: CASE EVENT DATE: 20150320
